FAERS Safety Report 5655364-8 (Version None)
Quarter: 2008Q1

REPORT INFORMATION
  Report Type: 
  Country: None (occurrence: None)
  Receive Date: 20080307
  Receipt Date: 20080227
  Transmission Date: 20080703
  Serious: Yes (Hospitalization, Disabling)
  Sender: FDA-Public Use
  Company Number: US-MERCK-0710USA04002

PATIENT
  Age: 45 Year
  Sex: Female
  Weight: 61 kg

DRUGS (4)
  1. FOSAMAX [Suspect]
     Indication: OSTEOPOROSIS
     Route: 048
     Dates: start: 20050304, end: 20050301
  2. PREMARIN [Concomitant]
     Route: 065
  3. NEXIUM [Concomitant]
     Route: 065
  4. CITRACAL CAPLETS + D [Concomitant]
     Route: 065

REACTIONS (17)
  - ANXIETY [None]
  - ASTHENIA [None]
  - BONE DISORDER [None]
  - DEPRESSION [None]
  - FACIAL PAIN [None]
  - HYPOAESTHESIA ORAL [None]
  - MALNUTRITION [None]
  - ORAL DISORDER [None]
  - ORAL INFECTION [None]
  - ORAL PAIN [None]
  - PAIN IN JAW [None]
  - PARAESTHESIA [None]
  - POLYARTHRITIS [None]
  - RHINALGIA [None]
  - SINUS DISORDER [None]
  - TOOTHACHE [None]
  - WEIGHT DECREASED [None]
